FAERS Safety Report 19088886 (Version 2)
Quarter: 2021Q2

REPORT INFORMATION
  Report Type: Spontaneous
  Country: GB (occurrence: GB)
  Receive Date: 20210403
  Receipt Date: 20210420
  Transmission Date: 20210717
  Serious: Yes (Other)
  Sender: FDA-Public Use
  Company Number: GB-AUROBINDO-AUR-APL-2021-013402

PATIENT
  Age: 33 Year
  Sex: Female

DRUGS (5)
  1. LAMOTRIGINE. [Concomitant]
     Active Substance: LAMOTRIGINE
     Indication: EPILEPSY
     Dosage: 150 MILLIGRAM, ONCE A DAY
     Route: 048
     Dates: start: 2013
  2. LEVETIRACETAM. [Suspect]
     Active Substance: LEVETIRACETAM
     Indication: EPILEPSY
     Dosage: 500 MILLIGRAM, ONCE A DAY
     Route: 048
  3. LEVETIRACETAM. [Suspect]
     Active Substance: LEVETIRACETAM
     Dosage: UNK
     Route: 048
  4. LEVETIRACETAM. [Suspect]
     Active Substance: LEVETIRACETAM
     Dosage: UNK (UNKNOWN DOSE (TITRATING IT OUT)
     Route: 048
  5. SODIUM VALPROATE [Concomitant]
     Active Substance: VALPROATE SODIUM
     Indication: EPILEPSY
     Dosage: UNK, 800MG MORNING 700MG AT NIGHT
     Route: 048
     Dates: start: 2013

REACTIONS (2)
  - Product taste abnormal [Unknown]
  - Seizure [Recovering/Resolving]
